FAERS Safety Report 7119005-5 (Version None)
Quarter: 2010Q4

REPORT INFORMATION
  Report Type: 
  Country: None (occurrence: None)
  Receive Date: 20101123
  Receipt Date: 20101026
  Transmission Date: 20110411
  Serious: Yes (Other)
  Sender: FDA-Public Use
  Company Number: A0877505A

PATIENT
  Age: 28 Year
  Sex: Female

DRUGS (2)
  1. VERAMYST [Suspect]
     Indication: NASAL CONGESTION
     Route: 065
     Dates: start: 20100701
  2. ERYTHROMYCIN [Concomitant]

REACTIONS (3)
  - DRY EYE [None]
  - EYE COMPLICATION ASSOCIATED WITH DEVICE [None]
  - PUNCTATE KERATITIS [None]
